FAERS Safety Report 9453079 (Version 1)
Quarter: 2013Q3

REPORT INFORMATION
  Report Type: Spontaneous
  Country: US (occurrence: US)
  Receive Date: 20130812
  Receipt Date: 20130812
  Transmission Date: 20140515
  Serious: No
  Sender: FDA-Public Use
  Company Number: US-BAXTER-2013BAX029926

PATIENT
  Age: 72 Year
  Sex: Male
  Weight: 97.88 kg

DRUGS (1)
  1. DIANEAL LOW CALCIUM [Suspect]
     Indication: PERITONEAL DIALYSIS
     Route: 033
     Dates: start: 201306

REACTIONS (3)
  - Discomfort [Recovering/Resolving]
  - Oedema [Recovering/Resolving]
  - Abdominal distension [Recovering/Resolving]
